FAERS Safety Report 8572852 (Version 2)
Quarter: 2012Q4

REPORT INFORMATION
  Report Type: 
  Country: FR (occurrence: FR)
  Receive Date: 20120522
  Receipt Date: 20121217
  Transmission Date: 20130627
  Serious: Yes (Death, Life-Threatening, Hospitalization, Other)
  Sender: FDA-Public Use
  Company Number: FR-BRISTOL-MYERS SQUIBB COMPANY-16590093

PATIENT
  Age: 83 Year
  Sex: Male

DRUGS (3)
  1. COUMADIN [Suspect]
     Indication: ATRIAL FIBRILLATION
     Dosage: 1 df: 1 Unit NOS
     Route: 048
     Dates: end: 20120429
  2. HYDREA [Concomitant]
     Indication: POLYCYTHAEMIA
     Dosage: 1 df; 1 UNIT NOS
  3. SINEMET [Concomitant]
     Indication: PARKINSON^S DISEASE
     Dosage: 100 5/d 
2-2-1

REACTIONS (6)
  - Gastrointestinal haemorrhage [Fatal]
  - Shock haemorrhagic [Recovering/Resolving]
  - Retroperitoneal haematoma [Recovering/Resolving]
  - Anaemia [Recovering/Resolving]
  - International normalised ratio increased [Recovering/Resolving]
  - Fall [Recovering/Resolving]
